FAERS Safety Report 7971555-5 (Version None)
Quarter: 2011Q4

REPORT INFORMATION
  Report Type: 
  Country: None (occurrence: None)
  Receive Date: 20111212
  Receipt Date: 20111205
  Transmission Date: 20120403
  Serious: Yes (Hospitalization, Other)
  Sender: FDA-Public Use
  Company Number: DE-AMGEN-DEUSP2011045322

PATIENT
  Age: 75 Year
  Sex: Female
  Weight: 52 kg

DRUGS (12)
  1. ECHINACEA                          /01323501/ [Concomitant]
  2. PHOSPHORUS [Concomitant]
     Route: 058
  3. HELLEBORUS NIGER EXTRACT [Concomitant]
     Indication: MYELODYSPLASTIC SYNDROME
     Dosage: 5 ML, QD
     Route: 058
  4. PLUMBUM METALLICUM [Concomitant]
     Route: 058
  5. ARGENTUM METALLICUM [Concomitant]
     Route: 058
  6. HOMEOPATICS NOS [Concomitant]
  7. HOMEOPATHIC PREPARATION [Concomitant]
  8. MISTLETOE [Concomitant]
     Indication: PRODUCT USED FOR UNKNOWN INDICATION
  9. ARSENIC TRIOXIDE [Concomitant]
     Route: 058
  10. NEULASTA [Suspect]
     Indication: MYELODYSPLASTIC SYNDROME
     Dosage: UNK UNK, ONE TIME DOSE
     Dates: start: 20110729
  11. HELIXOR [Concomitant]
     Dosage: 1 MG, UNK
     Route: 058
  12. URTICA EXTRACT [Concomitant]
     Route: 048

REACTIONS (14)
  - PSOAS ABSCESS [None]
  - FEBRILE NEUTROPENIA [None]
  - EMPHYSEMA [None]
  - HAEMANGIOMA [None]
  - ALOPECIA [None]
  - BONE PAIN [None]
  - WHITE BLOOD CELL COUNT DECREASED [None]
  - WHITE BLOOD CELL COUNT INCREASED [None]
  - PYREXIA [None]
  - CLOSTRIDIAL INFECTION [None]
  - ASCITES [None]
  - ANAEMIA [None]
  - SOMNOLENCE [None]
  - BRONCHIECTASIS [None]
